FAERS Safety Report 22270832 (Version 1)
Quarter: 2023Q2

REPORT INFORMATION
  Report Type: Spontaneous
  Country: ZA (occurrence: ZA)
  Receive Date: 20230501
  Receipt Date: 20230501
  Transmission Date: 20230722
  Serious: Yes (Congenital Anomaly, Other)
  Sender: FDA-Public Use
  Company Number: ZA-MYLANLABS-2023M1044413

PATIENT
  Age: 0 Year
  Sex: Male

DRUGS (10)
  1. AMLODIPINE BESYLATE [Suspect]
     Active Substance: AMLODIPINE BESYLATE
     Indication: Congenital pulmonary hypertension
     Dosage: 0.5 MILLIGRAM, BID
     Route: 065
  2. FERRIC PYROPHOSPHATE [Suspect]
     Active Substance: FERRIC PYROPHOSPHATE
     Indication: Product used for unknown indication
     Dosage: 5 GTT DROPS, QD
     Route: 065
  3. VITAMIN D NOS [Suspect]
     Active Substance: VITAMIN D NOS
     Indication: Product used for unknown indication
     Dosage: 500 INTERNATIONAL UNIT, QD
     Route: 065
  4. CAPOTEN [Concomitant]
     Active Substance: CAPTOPRIL
     Indication: Congenital pulmonary hypertension
     Dosage: 0.2 MILLIGRAM, Q8H
     Route: 065
  5. CALCIUM CARBONATE [Concomitant]
     Active Substance: CALCIUM CARBONATE
     Dosage: 1 MILLILITER, Q6H (T IN 10ML H20- 1ML Q6H WITH FEEDS)
     Route: 065
  6. SODIUM BICARBONATE [Concomitant]
     Active Substance: SODIUM BICARBONATE
     Dosage: 4 MILLILITER, Q6H (4ML IN Q6H PO)
     Route: 048
  7. Vidaylin [Concomitant]
     Dosage: 2.5 MILLILITER, QD
     Route: 065
  8. EPREX [Concomitant]
     Active Substance: ERYTHROPOIETIN
     Dosage: 650 INTERNATIONAL UNIT, QW
     Route: 058
  9. FOLIC ACID [Concomitant]
     Active Substance: FOLIC ACID
     Dosage: UNK (1/4 TAB) QD
     Route: 065
  10. REUTERINA DROPS [Concomitant]
     Dosage: 5 GTT DROPS, QD
     Route: 065

REACTIONS (11)
  - Congenital pulmonary hypertension [Unknown]
  - Persistent foetal circulation [Unknown]
  - Pulmonary hypoplasia [Unknown]
  - Chronic kidney disease [Unknown]
  - Hypocalvaria [Recovering/Resolving]
  - Renal aplasia [Unknown]
  - Foetal exposure during pregnancy [Unknown]
  - Proteinuria [Unknown]
  - Blood creatinine decreased [Unknown]
  - Weight gain poor [Unknown]
  - Off label use [Unknown]

NARRATIVE: CASE EVENT DATE: 20220209
